FAERS Safety Report 6305852-6 (Version None)
Quarter: 2009Q3

REPORT INFORMATION
  Report Type: 
  Country: None (occurrence: None)
  Receive Date: 20090812
  Receipt Date: 20090805
  Transmission Date: 20100115
  Serious: Yes (Hospitalization)
  Sender: FDA-Public Use
  Company Number: US-BRISTOL-MYERS SQUIBB COMPANY-14733679

PATIENT
  Sex: Male

DRUGS (10)
  1. EFAVIRENZ [Suspect]
     Route: 048
  2. STAVUDINE [Suspect]
     Route: 048
  3. RALTEGRAVIR [Suspect]
     Dosage: FORMULATION -TABS
     Route: 048
  4. LOPINAVIR AND RITONAVIR [Suspect]
     Route: 065
  5. DARUNAVIR [Suspect]
     Route: 048
  6. RITONAVIR [Suspect]
     Route: 048
  7. LAMIVUDINE [Concomitant]
  8. OCTOCOG ALPHA [Concomitant]
  9. PIOGLITAZONE HCL [Concomitant]
  10. ZIDOVUDINE [Concomitant]

REACTIONS (3)
  - ARTHRITIS [None]
  - BLOOD GLUCOSE INCREASED [None]
  - HYPERLIPIDAEMIA [None]
